FAERS Safety Report 12836235 (Version 5)
Quarter: 2017Q1

REPORT INFORMATION
  Report Type: Spontaneous
  Country: JP (occurrence: JP)
  Receive Date: 20161011
  Receipt Date: 20170124
  Transmission Date: 20170428
  Serious: Yes (Life-Threatening, Hospitalization, Other)
  Sender: FDA-Public Use
  Company Number: JP-GLAXOSMITHKLINE-JP2016JPN146236

PATIENT
  Age: 59 Year
  Sex: Female
  Weight: 46 kg

DRUGS (15)
  1. LAMICTAL [Suspect]
     Active Substance: LAMOTRIGINE
     Dosage: 75 MG, 1D
     Route: 048
     Dates: start: 20160816, end: 20160826
  2. RISPERDAL [Concomitant]
     Active Substance: RISPERIDONE
     Dosage: 1 MG, PRN
     Dates: start: 20160711
  3. LUNESTA [Concomitant]
     Active Substance: ESZOPICLONE
     Dosage: 2 MG, PRN
     Dates: start: 20160713
  4. LAMICTAL [Suspect]
     Active Substance: LAMOTRIGINE
     Dosage: 100 MG, QD
     Route: 048
     Dates: start: 20160827, end: 20160915
  5. REFLEX [Concomitant]
     Active Substance: MIRTAZAPINE
     Dosage: 30 MG, 1D
     Dates: start: 20160630, end: 20160708
  6. DEPAS [Concomitant]
     Active Substance: ETIZOLAM
     Dosage: 1 MG, 1D
     Dates: start: 20160630, end: 20160704
  7. LAMICTAL [Suspect]
     Active Substance: LAMOTRIGINE
     Indication: BIPOLAR DISORDER
     Dosage: 25 MG, 1D
     Route: 048
     Dates: start: 20160709, end: 20160722
  8. ROHYPNOL [Concomitant]
     Active Substance: FLUNITRAZEPAM
     Dosage: 4 MG, 1D
  9. PAXIL CR [Concomitant]
     Active Substance: PAROXETINE HYDROCHLORIDE
     Dosage: 37.5 MG, 1D
     Dates: start: 20160630, end: 20160711
  10. SILECE [Concomitant]
     Active Substance: FLUNITRAZEPAM
     Dosage: 2 MG, 1D
     Dates: start: 20160630
  11. LAMICTAL [Suspect]
     Active Substance: LAMOTRIGINE
     Dosage: 50 MG, 1D
     Route: 048
     Dates: start: 20160723, end: 20160815
  12. REFLEX [Concomitant]
     Active Substance: MIRTAZAPINE
     Dosage: 30 MG, 1D
     Dates: start: 20160709
  13. MYSLEE [Concomitant]
     Active Substance: ZOLPIDEM TARTRATE
     Dosage: 10 MG, 1D
     Dates: start: 20160630
  14. LEVOTOMIN [Suspect]
     Active Substance: LEVOMEPROMAZINE
     Dosage: UNK
     Route: 048
     Dates: start: 20161026, end: 20161026
  15. LENDORMIN [Concomitant]
     Active Substance: BROTIZOLAM
     Dosage: 0.25 MG, 1D
     Dates: start: 20160709

REACTIONS (14)
  - Staphylococcal infection [Recovering/Resolving]
  - Blister [Unknown]
  - Drug eruption [Unknown]
  - Erythema of eyelid [Unknown]
  - Drug reaction with eosinophilia and systemic symptoms [Recovering/Resolving]
  - Pyrexia [Unknown]
  - Rash maculo-papular [Unknown]
  - Generalised erythema [Unknown]
  - Stevens-Johnson syndrome [Recovering/Resolving]
  - Rash generalised [Unknown]
  - Ocular hyperaemia [Unknown]
  - Vulval disorder [Unknown]
  - Malaise [Unknown]
  - Skin erosion [Unknown]

NARRATIVE: CASE EVENT DATE: 20160907
